FAERS Safety Report 17227170 (Version 1)
Quarter: 2020Q1

REPORT INFORMATION
  Report Type: Spontaneous
  Country: US (occurrence: US)
  Receive Date: 20200103
  Receipt Date: 20200103
  Transmission Date: 20200409
  Serious: Yes (Other)
  Sender: FDA-Public Use
  Company Number: US-PACIRA-201900443

PATIENT

DRUGS (2)
  1. EXPAREL [Suspect]
     Active Substance: BUPIVACAINE
     Indication: KNEE ARTHROPLASTY
     Dosage: 20 ML DILUTED TO A VOLUME OF 40 ML USING SALINE
     Route: 052
  2. BUPIVACAINE. [Concomitant]
     Active Substance: BUPIVACAINE
     Indication: NERVE BLOCK
     Dosage: 20ML BUPIVACAINE 0.25% SINGLE SHOT UNDER ULTRASOUND GUIDANCE

REACTIONS (2)
  - Surgery [Unknown]
  - Joint manipulation [Unknown]
